FAERS Safety Report 18286315 (Version 1)
Quarter: 2020Q3

REPORT INFORMATION
  Report Type: Spontaneous
  Country: AU (occurrence: AU)
  Receive Date: 20200920
  Receipt Date: 20200920
  Transmission Date: 20201103
  Serious: Yes (Other)
  Sender: FDA-Public Use
  Company Number: AU-NOVITIUMPHARMA-2020AUNVP00059

PATIENT
  Age: 23 Year
  Sex: Male
  Weight: 93 kg

DRUGS (11)
  1. PREDNISONE. [Suspect]
     Active Substance: PREDNISONE
     Indication: GLOMERULONEPHRITIS MINIMAL LESION
     Route: 048
  2. PREDNISONE. [Suspect]
     Active Substance: PREDNISONE
     Route: 048
  3. CYCLOSPORIN [Concomitant]
     Active Substance: CYCLOSPORINE
     Route: 048
  4. ENOXAPARIN [Interacting]
     Active Substance: ENOXAPARIN
  5. WARFARIN [Interacting]
     Active Substance: WARFARIN
  6. PREDNISONE. [Suspect]
     Active Substance: PREDNISONE
     Route: 048
  7. CYCLOSPORIN [Concomitant]
     Active Substance: CYCLOSPORINE
     Route: 048
  8. PREDNISONE. [Suspect]
     Active Substance: PREDNISONE
     Route: 048
  9. RITUXIMAB. [Interacting]
     Active Substance: RITUXIMAB
     Indication: NEPHROTIC SYNDROME
  10. PREDNISONE. [Suspect]
     Active Substance: PREDNISONE
     Route: 048
  11. PREDNISONE. [Suspect]
     Active Substance: PREDNISONE
     Route: 048

REACTIONS (2)
  - Cerebral venous sinus thrombosis [Recovered/Resolved]
  - IgM nephropathy [Recovered/Resolved]
